FAERS Safety Report 4384152-8 (Version None)
Quarter: 2004Q2

REPORT INFORMATION
  Report Type: 
  Country: None (occurrence: None)
  Receive Date: 20040623
  Receipt Date: 20040623
  Transmission Date: 20050107
  Serious: Yes (Life-Threatening)
  Sender: FDA-Public Use
  Company Number: None

PATIENT
  Sex: Male

DRUGS (1)
  1. GEMCITABINE [Suspect]
     Indication: HEPATIC NEOPLASM MALIGNANT
     Dosage: 2 GRAMS EVERY WEEK INTRAVENOUS
     Route: 042
     Dates: start: 20040302, end: 20040309

REACTIONS (1)
  - LEUKOPENIA [None]
